FAERS Safety Report 4385450-4 (Version None)
Quarter: 2004Q2

REPORT INFORMATION
  Report Type: 
  Country: None (occurrence: None)
  Receive Date: 20040628
  Receipt Date: 20040622
  Transmission Date: 20050107
  Serious: Yes (Other)
  Sender: FDA-Public Use
  Company Number: PHBS2004CA08219

PATIENT

DRUGS (2)
  1. TRILEPTAL [Suspect]
     Indication: CONVULSION
     Route: 048
  2. DILANTIN [Concomitant]

REACTIONS (2)
  - ARTERY DISSECTION [None]
  - BRAIN STEM INFARCTION [None]
